FAERS Safety Report 7730147-3 (Version None)
Quarter: 2011Q3

REPORT INFORMATION
  Report Type: 
  Country: None (occurrence: None)
  Receive Date: 20110906
  Receipt Date: 20110826
  Transmission Date: 20111222
  Serious: Yes (Other)
  Sender: FDA-Public Use
  Company Number: GB-ROCHE-799606

PATIENT
  Sex: Female

DRUGS (5)
  1. TOCILIZUMAB [Suspect]
     Route: 065
     Dates: start: 20110329, end: 20110329
  2. TOCILIZUMAB [Suspect]
     Route: 065
     Dates: start: 20110509, end: 20110509
  3. TOCILIZUMAB [Suspect]
     Route: 065
     Dates: start: 20110704, end: 20110704
  4. TOCILIZUMAB [Suspect]
     Route: 065
     Dates: start: 20110606, end: 20110606
  5. TOCILIZUMAB [Suspect]
     Route: 065
     Dates: start: 20110301, end: 20110301

REACTIONS (6)
  - MUSCULAR WEAKNESS [None]
  - DIARRHOEA [None]
  - VOMITING [None]
  - DIZZINESS [None]
  - OEDEMA PERIPHERAL [None]
  - FALL [None]
